FAERS Safety Report 4354049-8 (Version None)
Quarter: 2004Q2

REPORT INFORMATION
  Report Type: 
  Country: None (occurrence: None)
  Receive Date: 20040506
  Receipt Date: 19991209
  Transmission Date: 20050107
  Serious: Yes (Other)
  Sender: FDA-Public Use
  Company Number: 199922130HMRI

PATIENT
  Sex: 0

DRUGS (2)
  1. ARAVA [Suspect]
     Indication: RHEUMATOID ARTHRITIS
  2. UNKNOWN DRUG [Concomitant]

REACTIONS (3)
  - HEPATIC FAILURE [None]
  - PITTING OEDEMA [None]
  - VASCULITIS [None]
